FAERS Safety Report 19468417 (Version 2)
Quarter: 2022Q1

REPORT INFORMATION
  Report Type: Spontaneous
  Country: US (occurrence: US)
  Receive Date: 20210628
  Receipt Date: 20220203
  Transmission Date: 20220423
  Serious: Yes (Other)
  Sender: FDA-Public Use
  Company Number: US-GILEAD-2021-0537925

PATIENT
  Age: 61 Year
  Sex: Male
  Weight: 125.2 kg

DRUGS (25)
  1. TRUVADA [Suspect]
     Active Substance: EMTRICITABINE\TENOFOVIR DISOPROXIL FUMARATE
     Indication: HIV infection
     Dosage: UNK
     Route: 048
     Dates: start: 2006
  2. TRUVADA [Suspect]
     Active Substance: EMTRICITABINE\TENOFOVIR DISOPROXIL FUMARATE
     Dosage: UNK
     Route: 048
     Dates: start: 2007, end: 201606
  3. VIREAD [Suspect]
     Active Substance: TENOFOVIR DISOPROXIL FUMARATE
     Indication: HIV infection
     Dosage: UNK
     Route: 065
     Dates: start: 200606, end: 2007
  4. DESCOVY [Concomitant]
     Active Substance: EMTRICITABINE\TENOFOVIR ALAFENAMIDE FUMARATE
  5. EPIVIR [Concomitant]
     Active Substance: LAMIVUDINE
  6. ISENTRESS [Concomitant]
     Active Substance: RALTEGRAVIR POTASSIUM
  7. KALETRA [Concomitant]
     Active Substance: LOPINAVIR\RITONAVIR
  8. NORVIR [Concomitant]
     Active Substance: RITONAVIR
  9. REYATAZ [Concomitant]
     Active Substance: ATAZANAVIR SULFATE
  10. ANASTROZOLE [Concomitant]
     Active Substance: ANASTROZOLE
  11. CABERGOLINE [Concomitant]
     Active Substance: CABERGOLINE
  12. WELLBUTRIN [Concomitant]
     Active Substance: BUPROPION HYDROCHLORIDE
  13. PLAVIX [Concomitant]
     Active Substance: CLOPIDOGREL BISULFATE
  14. COZAAR [Concomitant]
     Active Substance: LOSARTAN POTASSIUM
  15. VITAMIN D NOS [Concomitant]
     Active Substance: VITAMIN D NOS
  16. DOXAZOSIN [Concomitant]
     Active Substance: DOXAZOSIN MESYLATE
  17. ISOSORBIDE [Concomitant]
     Active Substance: ISOSORBIDE
  18. METOPROLOL [Concomitant]
     Active Substance: METOPROLOL
  19. OXYCODONE [Concomitant]
     Active Substance: OXYCODONE
  20. ASPIRIN [Concomitant]
     Active Substance: ASPIRIN
  21. FAMOTIDINE [Concomitant]
     Active Substance: FAMOTIDINE
  22. PRAVASTATIN [Concomitant]
     Active Substance: PRAVASTATIN
  23. TEMAZEPAM [Concomitant]
     Active Substance: TEMAZEPAM
  24. TESTOSTERONE [Concomitant]
     Active Substance: TESTOSTERONE
  25. EDURANT [Concomitant]
     Active Substance: RILPIVIRINE HYDROCHLORIDE

REACTIONS (12)
  - Chronic kidney disease [Unknown]
  - Renal failure [Not Recovered/Not Resolved]
  - Renal impairment [Unknown]
  - Renal pain [Unknown]
  - Pain [Not Recovered/Not Resolved]
  - Emotional distress [Not Recovered/Not Resolved]
  - Anxiety [Not Recovered/Not Resolved]
  - Anhedonia [Not Recovered/Not Resolved]
  - Pollakiuria [Unknown]
  - Back pain [Unknown]
  - Insomnia [Unknown]
  - Blood creatinine increased [Unknown]

NARRATIVE: CASE EVENT DATE: 20140601
